FAERS Safety Report 7868896-9 (Version None)
Quarter: 2011Q4

REPORT INFORMATION
  Report Type: 
  Country: None (occurrence: None)
  Receive Date: 20111028
  Receipt Date: 20101221
  Transmission Date: 20120403
  Serious: No
  Sender: FDA-Public Use
  Company Number: US-AMGEN-USASP2010010496

PATIENT
  Age: 60 Year
  Sex: Female

DRUGS (2)
  1. ENBREL [Suspect]
     Indication: RHEUMATOID ARTHRITIS
     Dates: start: 20090908
  2. METHOTREXATE [Concomitant]

REACTIONS (3)
  - THERAPEUTIC RESPONSE DECREASED [None]
  - PAIN IN EXTREMITY [None]
  - FOOT DEFORMITY [None]
